FAERS Safety Report 24168700 (Version 1)
Quarter: 2024Q3

REPORT INFORMATION
  Report Type: Report from Study
  Country: CN (occurrence: CN)
  Receive Date: 20240802
  Receipt Date: 20240802
  Transmission Date: 20241017
  Serious: Yes (Death, Other)
  Sender: JOHNSON AND JOHNSON
  Company Number: CN-JNJFOC-20240768784

PATIENT

DRUGS (15)
  1. BEDAQUILINE [Suspect]
     Active Substance: BEDAQUILINE
     Indication: Tuberculosis
     Dosage: FOR 2 CONSECUTIVE WEEKS
     Route: 048
  2. BEDAQUILINE [Suspect]
     Active Substance: BEDAQUILINE
     Indication: Tuberculosis
     Dosage: FOR 22 WEEKS (WITH AN INTERVAL OF AT LEAST 48 HOURS AT EACH TIME OF DRUG USE)
     Route: 048
  3. BEDAQUILINE [Suspect]
     Active Substance: BEDAQUILINE
     Indication: Tuberculosis
  4. CAPREOMYCIN [Suspect]
     Active Substance: CAPREOMYCIN
  5. LINEZOLID [Suspect]
     Active Substance: LINEZOLID
  6. CYCLOSERINE [Suspect]
     Active Substance: CYCLOSERINE
  7. CLOFAZIMINE [Suspect]
     Active Substance: CLOFAZIMINE
  8. MOXIFLOXACIN [Suspect]
     Active Substance: MOXIFLOXACIN
  9. LEVOFLOXACIN [Suspect]
     Active Substance: LEVOFLOXACIN
  10. AMIKACIN [Suspect]
     Active Substance: AMIKACIN
  11. AMINOSALICYLATE SODIUM [Suspect]
     Active Substance: AMINOSALICYLATE SODIUM
  12. PYRAZINAMIDE [Suspect]
     Active Substance: PYRAZINAMIDE
  13. PROTIONAMIDE [Suspect]
     Active Substance: PROTIONAMIDE
  14. AMOXICILLIN AND CLAVULANATE POTASSIUM [Suspect]
     Active Substance: AMOXICILLIN\CLAVULANATE POTASSIUM
  15. ETHAMBUTOL [Suspect]
     Active Substance: ETHAMBUTOL HYDROCHLORIDE

REACTIONS (7)
  - Death [Fatal]
  - Renal failure [Fatal]
  - Respiratory failure [Fatal]
  - Electrocardiogram QT prolonged [Unknown]
  - Liver injury [Unknown]
  - Pneumonia [Unknown]
  - Palpitations [Recovering/Resolving]
